FAERS Safety Report 10077090 (Version 1)
Quarter: 2014Q2

REPORT INFORMATION
  Report Type: Spontaneous
  Country: CH (occurrence: None)
  Receive Date: 20140410
  Receipt Date: 20140410
  Transmission Date: 20141212
  Serious: Yes (Life-Threatening)
  Sender: FDA-Public Use
  Company Number: AG-2014-001162

PATIENT
  Age: 70 Year
  Sex: Female

DRUGS (10)
  1. LEUKERAN [Suspect]
     Indication: CHRONIC LYMPHOCYTIC LEUKAEMIA
     Route: 048
     Dates: start: 200303
  2. REDIMUNE [Suspect]
     Indication: IMMUNOGLOBULINS DECREASED
     Route: 041
     Dates: start: 200410
  3. PRIVIGEN [Suspect]
     Indication: IMMUNOGLOBULINS DECREASED
     Route: 041
     Dates: start: 200901
  4. INTRATECT [Suspect]
     Indication: IMMUNOGLOBULINS DECREASED
     Route: 041
     Dates: start: 201112
  5. PREDNISON [Suspect]
     Indication: CHRONIC LYMPHOCYTIC LEUKAEMIA
     Route: 048
     Dates: start: 200303
  6. FLUDARABIN [Suspect]
     Indication: CHRONIC LYMPHOCYTIC LEUKAEMIA
     Route: 042
     Dates: start: 200410
  7. MABTHERA [Suspect]
     Indication: CHRONIC LYMPHOCYTIC LEUKAEMIA
     Route: 041
     Dates: start: 200801
  8. CYCLOPHOSPHAMID [Suspect]
     Indication: CHRONIC LYMPHOCYTIC LEUKAEMIA
     Dates: start: 200801
  9. ONCOVIN [Suspect]
     Indication: CHRONIC LYMPHOCYTIC LEUKAEMIA
     Route: 041
     Dates: start: 200801
  10. RIBOMUSTIN [Suspect]
     Indication: CHRONIC LYMPHOCYTIC LEUKAEMIA
     Route: 041
     Dates: start: 201204

REACTIONS (2)
  - Creutzfeldt-Jakob disease [None]
  - Neurotoxicity [None]
